FAERS Safety Report 19410500 (Version 1)
Quarter: 2021Q2

REPORT INFORMATION
  Report Type: Other
  Country: CA (occurrence: CA)
  Receive Date: 20210614
  Receipt Date: 20210614
  Transmission Date: 20210717
  Serious: Yes (Other)
  Sender: FDA-Public Use
  Company Number: CA-CELLTRION INC.-2021CA007767

PATIENT

DRUGS (14)
  1. IRON SULPHATE [Concomitant]
     Active Substance: FERROUS SULFATE ANHYDROUS
  2. RITUXIMAB (UNKNOWN) [Suspect]
     Active Substance: RITUXIMAB
     Indication: RHEUMATOID ARTHRITIS
     Dosage: 1000 MG, 1 EVERY 15 DAYS
     Route: 042
  3. TYLENOL [Concomitant]
     Active Substance: ACETAMINOPHEN
     Indication: PREMEDICATION
     Dosage: 650 MILLIGRAM
     Route: 048
  4. DUPILUMAB [Concomitant]
     Active Substance: DUPILUMAB
     Route: 058
  5. LEFLUNOMIDE. [Concomitant]
     Active Substance: LEFLUNOMIDE
  6. MELOXICAM. [Concomitant]
     Active Substance: MELOXICAM
  7. PREDNISONE. [Concomitant]
     Active Substance: PREDNISONE
  8. OMEGA 3 [DOCOSAHEXAENOIC ACID;EICOSAPENTAENOIC ACID] [Concomitant]
     Active Substance: DOCONEXENT\ICOSAPENT
  9. CITALOPRAM [Concomitant]
     Active Substance: CITALOPRAM HYDROBROMIDE
  10. DEXILANT [Concomitant]
     Active Substance: DEXLANSOPRAZOLE
  11. DICLOFENAC [Concomitant]
     Active Substance: DICLOFENAC
  12. BENADRYL [Concomitant]
     Active Substance: DIPHENHYDRAMINE HYDROCHLORIDE
     Indication: PREMEDICATION
     Dosage: 50 MILLIGRAM
     Route: 048
  13. METHYLPREDNISOLONE SODIUM SUCCINATE. [Concomitant]
     Active Substance: METHYLPREDNISOLONE SODIUM SUCCINATE
     Indication: PREMEDICATION
     Dosage: 100 MILLIGRAM
     Route: 042
  14. NAPROXEN. [Concomitant]
     Active Substance: NAPROXEN

REACTIONS (9)
  - Blood pressure decreased [Recovered/Resolved]
  - Movement disorder [Recovered/Resolved]
  - Arthralgia [Recovered/Resolved]
  - Blood pressure diastolic decreased [Recovered/Resolved]
  - Off label use [Unknown]
  - Feeling of body temperature change [Recovered/Resolved]
  - Gastrointestinal viral infection [Recovered/Resolved]
  - Blood pressure diastolic abnormal [Recovered/Resolved]
  - Infusion related reaction [Recovered/Resolved]
